FAERS Safety Report 23108406 (Version 2)
Quarter: 2024Q3

REPORT INFORMATION
  Report Type: Report from Study
  Country: US (occurrence: US)
  Receive Date: 20231026
  Receipt Date: 20240722
  Transmission Date: 20241017
  Serious: No
  Sender: INCYTE
  Company Number: US-INCYTE CORPORATION-2023IN009748

PATIENT

DRUGS (3)
  1. JAKAFI [Suspect]
     Active Substance: RUXOLITINIB
     Indication: Polycythaemia vera
     Dosage: 5 MILLIGRAM, BID
     Route: 065
  2. JAKAFI [Suspect]
     Active Substance: RUXOLITINIB
     Dosage: 5 MILLIGRAM, QD
     Route: 065
  3. JAKAFI [Suspect]
     Active Substance: RUXOLITINIB
     Dosage: UNK
     Route: 065

REACTIONS (5)
  - Full blood count decreased [Unknown]
  - White blood cell count decreased [Unknown]
  - Red blood cell count decreased [Unknown]
  - Dizziness [Unknown]
  - Headache [Unknown]
